FAERS Safety Report 23218396 (Version 1)
Quarter: 2023Q4

REPORT INFORMATION
  Report Type: Spontaneous
  Country: FR (occurrence: FR)
  Receive Date: 20231122
  Receipt Date: 20231122
  Transmission Date: 20240110
  Serious: Yes (Hospitalization)
  Sender: FDA-Public Use
  Company Number: None

PATIENT
  Age: 42 Year
  Sex: Male
  Weight: 90 kg

DRUGS (3)
  1. KENACORT [Suspect]
     Active Substance: TRIAMCINOLONE
     Indication: Performance enhancing product use
     Dates: end: 202306
  2. TESTOSTERONE [Suspect]
     Active Substance: TESTOSTERONE
     Indication: Azoospermia
     Dates: start: 2022
  3. EPOETIN BETA [Suspect]
     Active Substance: ERYTHROPOIETIN
     Indication: Performance enhancing product use

REACTIONS (4)
  - Intentional product misuse [Recovered/Resolved]
  - Haematocrit increased [Recovered/Resolved]
  - Peripheral ischaemia [Recovered/Resolved with Sequelae]
  - Off label use [Unknown]

NARRATIVE: CASE EVENT DATE: 20231017
